FAERS Safety Report 9174047 (Version 2)
Quarter: 2013Q2

REPORT INFORMATION
  Report Type: Spontaneous
  Country: JP (occurrence: None)
  Receive Date: 20130314
  Receipt Date: 20130418
  Transmission Date: 20140414
  Serious: No
  Sender: FDA-Public Use
  Company Number: SPI201300131

PATIENT
  Age: 67 Year
  Sex: Female
  Weight: 48.6 kg

DRUGS (3)
  1. AMITIZA (LUBIPROSTONE) CAPSULE, 24MCG [Suspect]
     Indication: CONSTIPATION
     Route: 048
     Dates: start: 20130108, end: 20130201
  2. MYSLEE (ZOLPIDEM TARTRATE) [Concomitant]
  3. GASTER D (FAMOTIDINE) [Concomitant]

REACTIONS (4)
  - Weight decreased [None]
  - Decreased appetite [None]
  - Diarrhoea [None]
  - Chest discomfort [None]
